FAERS Safety Report 13177581 (Version 1)
Quarter: 2017Q1

REPORT INFORMATION
  Report Type: Report from Study
  Country: US (occurrence: US)
  Receive Date: 20170201
  Receipt Date: 20170201
  Transmission Date: 20170428
  Serious: No
  Sender: FDA-Public Use
  Company Number: US-EXELIXIS-CABO-16006555

PATIENT
  Sex: Female

DRUGS (3)
  1. LISINOPRIL. [Concomitant]
     Active Substance: LISINOPRIL
  2. NORVASC [Concomitant]
     Active Substance: AMLODIPINE BESYLATE
  3. COMETRIQ [Suspect]
     Active Substance: CABOZANTINIB S-MALATE
     Indication: METASTASES TO BONE
     Dosage: 60 MG, QD
     Route: 048
     Dates: start: 20160525, end: 20160619

REACTIONS (19)
  - Urinary tract infection [Unknown]
  - Gait disturbance [Recovered/Resolved]
  - Skin lesion [Recovering/Resolving]
  - Urine abnormality [Recovered/Resolved]
  - Feeling abnormal [Recovered/Resolved]
  - Blood pressure increased [Unknown]
  - Proteinuria [Unknown]
  - Nausea [Unknown]
  - Peripheral swelling [Recovered/Resolved]
  - Dysphagia [Recovered/Resolved]
  - Off label use [Unknown]
  - Pain in extremity [Recovered/Resolved]
  - Adverse drug reaction [Unknown]
  - Vomiting [Recovered/Resolved]
  - Mental impairment [Recovered/Resolved]
  - Blood urine present [Unknown]
  - Regurgitation [Recovered/Resolved]
  - Flushing [Recovering/Resolving]
  - Dysphonia [Recovered/Resolved]
